FAERS Safety Report 24172273 (Version 1)
Quarter: 2024Q3

REPORT INFORMATION
  Report Type: Spontaneous
  Country: US (occurrence: None)
  Receive Date: 20240803
  Receipt Date: 20240803
  Transmission Date: 20241017
  Serious: Yes (unspecified)
  Sender: Public
  Company Number: None

PATIENT
  Age: 54 Year
  Sex: Male
  Weight: 67.5 kg

DRUGS (9)
  1. EZETIMIBE [Suspect]
     Active Substance: EZETIMIBE
     Indication: Blood cholesterol abnormal
     Dosage: OTHER QUANTITY : 1 TABLET(S);?FREQUENCY : DAILY;?
     Route: 048
     Dates: start: 20240313, end: 20240415
  2. ATORVASTATIN [Concomitant]
  3. PANTOPRAZOLE [Concomitant]
  4. DILTIAZEM [Concomitant]
  5. LOSARTAN [Concomitant]
  6. ESCITALOPRAM [Concomitant]
     Active Substance: ESCITALOPRAM OXALATE
  7. Vitamin D [Concomitant]
  8. VITAMIN B12 [Concomitant]
     Active Substance: CYANOCOBALAMIN
  9. COQ [Concomitant]

REACTIONS (5)
  - Nausea [None]
  - Restlessness [None]
  - Arthralgia [None]
  - Eating disorder [None]
  - Pancreatitis [None]

NARRATIVE: CASE EVENT DATE: 20240319
